FAERS Safety Report 19169879 (Version 1)
Quarter: 2021Q2

REPORT INFORMATION
  Report Type: Report from Study
  Country: US (occurrence: US)
  Receive Date: 20210422
  Receipt Date: 20210422
  Transmission Date: 20210717
  Serious: Yes (Other)
  Sender: FDA-Public Use
  Company Number: US-TAKEDA-US201934993

PATIENT
  Sex: Female

DRUGS (1)
  1. HUMAN IMMUNOGLOBULIN; HYALURONIDASE [Suspect]
     Active Substance: HUMAN IMMUNOGLOBULIN G\HYALURONIDASE RECOMBINANT HUMAN
     Indication: SELECTIVE IGG SUBCLASS DEFICIENCY
     Dosage: UNK
     Route: 065

REACTIONS (5)
  - Nerve injury [Unknown]
  - Headache [Unknown]
  - Systemic lupus erythematosus [Unknown]
  - Ovarian cyst [Unknown]
  - Inappropriate schedule of product administration [Unknown]
